FAERS Safety Report 10004614 (Version 1)
Quarter: 2014Q1

REPORT INFORMATION
  Report Type: Spontaneous
  Country: US (occurrence: US)
  Receive Date: 20140312
  Receipt Date: 20140312
  Transmission Date: 20141002
  Serious: No
  Sender: FDA-Public Use
  Company Number: US-INCYTE CORPORATION-2013IN003074

PATIENT
  Age: 62 Year
  Sex: Female
  Weight: 71.2 kg

DRUGS (9)
  1. JAKAFI [Suspect]
     Indication: MYELOFIBROSIS
     Dosage: 10 MG, BID
     Route: 048
  2. LOMOTIL                            /00034001/ [Concomitant]
     Dosage: 2.5 MG, UNK
  3. LIPITOR [Concomitant]
     Dosage: 10 MG, UNK
  4. ALLEGRA [Concomitant]
     Dosage: 30 MG, UNK
  5. NEXIUM                             /01479302/ [Concomitant]
     Dosage: 20 MG, UNK
  6. MULTIVITAMIN                       /00097801/ [Concomitant]
  7. SUPER B                            /07410401/ [Concomitant]
  8. IMODIUM ADVANCED [Concomitant]
  9. ZOLPIDEM [Concomitant]

REACTIONS (1)
  - Dysgeusia [Unknown]
